FAERS Safety Report 9855210 (Version 3)
Quarter: 2015Q3

REPORT INFORMATION
  Report Type: Spontaneous
  Country: US (occurrence: US)
  Receive Date: 20140130
  Receipt Date: 20150702
  Transmission Date: 20151125
  Serious: Yes (Life-Threatening, Hospitalization)
  Sender: FDA-Public Use
  Company Number: US-BAYER-2014-013313

PATIENT
  Age: 40 Year
  Sex: Female
  Weight: 158.73 kg

DRUGS (1)
  1. MIRENA [Suspect]
     Active Substance: LEVONORGESTREL
     Indication: CONTRACEPTION
     Dosage: 20 MCG/24HR, CONT
     Route: 015
     Dates: start: 200610, end: 20120127

REACTIONS (10)
  - Anxiety [None]
  - Anhedonia [None]
  - Pain [None]
  - Uterine perforation [None]
  - Abdominal pain lower [None]
  - Emotional distress [None]
  - Injury [None]
  - Intentional device misuse [None]
  - General physical health deterioration [None]
  - Device issue [None]

NARRATIVE: CASE EVENT DATE: 2011
